FAERS Safety Report 9014642 (Version 2)
Quarter: 2013Q2

REPORT INFORMATION
  Report Type: Report from Study
  Country: CA (occurrence: CA)
  Receive Date: 20130115
  Receipt Date: 20130513
  Transmission Date: 20140414
  Serious: Yes (Hospitalization)
  Sender: FDA-Public Use
  Company Number: CA-TEVA-380275USA

PATIENT
  Age: 67 Year
  Sex: Female
  Weight: 52.8 kg

DRUGS (28)
  1. TREANDA [Suspect]
     Indication: NON-HODGKIN^S LYMPHOMA UNSPECIFIED HISTOLOGY INDOLENT
     Route: 042
     Dates: start: 20120502, end: 20120503
  2. TREANDA [Suspect]
     Route: 042
     Dates: start: 20120530, end: 20120531
  3. TREANDA [Suspect]
     Route: 042
     Dates: start: 20120627, end: 20120628
  4. TREANDA [Suspect]
     Route: 042
     Dates: start: 20120806, end: 20120807
  5. TREANDA [Suspect]
     Route: 042
     Dates: start: 20120904, end: 20120905
  6. TREANDA [Suspect]
     Route: 042
     Dates: start: 20121004, end: 20121005
  7. TREANDA [Suspect]
     Route: 042
     Dates: start: 20121101, end: 20121102
  8. TREANDA [Suspect]
     Route: 042
     Dates: start: 20121129, end: 20121130
  9. ACETAMINOPHEN [Concomitant]
     Indication: HEADACHE
     Dates: start: 2012
  10. TIOTROPIUM BROMIDE [Concomitant]
     Indication: CHRONIC OBSTRUCTIVE PULMONARY DISEASE
     Dates: start: 2006
  11. FLUTICASONE / SALMETEROL [Concomitant]
     Indication: CHRONIC OBSTRUCTIVE PULMONARY DISEASE
     Dosage: 250/50
     Dates: start: 2006
  12. SALBUTAMOL [Concomitant]
     Indication: CHRONIC OBSTRUCTIVE PULMONARY DISEASE
     Dates: start: 2006
  13. ZOPICLONE [Concomitant]
     Indication: INSOMNIA
     Dates: start: 2009
  14. DEXAMETHASONE [Concomitant]
     Indication: PROPHYLAXIS OF NAUSEA AND VOMITING
     Dates: start: 2012, end: 2012
  15. GRANISETRON [Concomitant]
     Indication: PROPHYLAXIS OF NAUSEA AND VOMITING
     Dates: start: 2012, end: 2012
  16. IBUPROFEN [Concomitant]
     Indication: PAIN IN EXTREMITY
     Dates: start: 2012
  17. PROCHLORPERAZINE [Concomitant]
     Indication: NAUSEA
     Dates: start: 2012, end: 2012
  18. DIPHENHYDRAMINE [Concomitant]
     Indication: PRURITUS
     Dates: start: 2012, end: 2012
  19. BUPROPION [Concomitant]
     Indication: SMOKING CESSATION THERAPY
     Dates: start: 2012, end: 2012
  20. TINZAPARIN [Concomitant]
     Indication: THROMBOSIS PROPHYLAXIS
     Dates: start: 2012, end: 2012
  21. TINZAPARIN [Concomitant]
     Dates: start: 2012, end: 2012
  22. LORAZEPAM [Concomitant]
     Indication: INSOMNIA
     Dates: start: 2012, end: 2012
  23. NICODERM [Concomitant]
     Indication: SMOKING CESSATION THERAPY
     Dates: start: 2012
  24. OXYCODONE [Concomitant]
     Indication: OSTEOARTHRITIS
     Dates: start: 2012
  25. CELECOXIB [Concomitant]
     Indication: OSTEOARTHRITIS
     Dates: start: 2012
  26. NAPROXEN [Concomitant]
     Indication: OSTEOARTHRITIS
     Dates: start: 2012, end: 2012
  27. FUROSEMIDE [Concomitant]
     Indication: OEDEMA PERIPHERAL
     Dates: start: 2012, end: 2012
  28. PANTOPRAZOLE [Concomitant]
     Indication: NAUSEA
     Dates: start: 2012, end: 2012

REACTIONS (1)
  - Nocardiosis [Recovering/Resolving]
